FAERS Safety Report 7630852-3 (Version None)
Quarter: 2011Q3

REPORT INFORMATION
  Report Type: 
  Country: None (occurrence: None)
  Receive Date: 20110723
  Receipt Date: 20110715
  Transmission Date: 20111222
  Serious: Yes (Other)
  Sender: FDA-Public Use
  Company Number: US-ABBOTT-11P-163-0839399-00

PATIENT
  Sex: Female

DRUGS (4)
  1. NAPROXEN [Concomitant]
     Indication: PRODUCT USED FOR UNKNOWN INDICATION
  2. GABAPENTIN [Suspect]
     Indication: BACK PAIN
  3. VICODIN [Suspect]
     Indication: PRODUCT USED FOR UNKNOWN INDICATION
  4. IBUPROFEN (ADVIL) [Suspect]
     Indication: BACK PAIN

REACTIONS (7)
  - MAJOR DEPRESSION [None]
  - BACK PAIN [None]
  - SCREAMING [None]
  - THINKING ABNORMAL [None]
  - SUICIDAL IDEATION [None]
  - MOOD SWINGS [None]
  - AGGRESSION [None]
